FAERS Safety Report 8838888 (Version 1)
Quarter: 2012Q4

REPORT INFORMATION
  Report Type: Spontaneous
  Country: US (occurrence: None)
  Receive Date: 20121011
  Receipt Date: 20121011
  Transmission Date: 20130627
  Serious: Yes (Other)
  Sender: FDA-Public Use
  Company Number: None

PATIENT
  Age: 65 Year
  Sex: Female

DRUGS (1)
  1. ZOLINZA [Suspect]
     Dosage: 100MG BID PO
     Route: 048

REACTIONS (4)
  - Fatigue [None]
  - Neuropathy peripheral [None]
  - Visual impairment [None]
  - Headache [None]
